FAERS Safety Report 7681702-0 (Version None)
Quarter: 2011Q3

REPORT INFORMATION
  Report Type: 
  Country: None (occurrence: None)
  Receive Date: 20110812
  Receipt Date: 20110805
  Transmission Date: 20111222
  Serious: Yes (Death, Other)
  Sender: FDA-Public Use
  Company Number: FR-GENZYME-CAMP-1001808

PATIENT
  Age: 74 Year
  Sex: Female

DRUGS (9)
  1. CAMPATH [Suspect]
     Indication: HISTIOCYTOSIS HAEMATOPHAGIC
  2. CYCLOPHOSPHAMIDE [Concomitant]
     Indication: HISTIOCYTOSIS HAEMATOPHAGIC
     Dosage: UNK
     Route: 065
  3. DOXORUBICIN HCL [Concomitant]
     Indication: HISTIOCYTOSIS HAEMATOPHAGIC
     Dosage: UNK
     Route: 065
  4. ANTIBIOTICS [Concomitant]
     Indication: HISTIOCYTOSIS HAEMATOPHAGIC
     Dosage: UNK
     Route: 065
  5. PREDNISONE [Concomitant]
     Indication: HISTIOCYTOSIS HAEMATOPHAGIC
     Dosage: UNK
     Route: 065
  6. STEROIDS [Suspect]
     Indication: LYMPHOMA
     Dosage: UNK
     Route: 042
  7. STEROIDS [Suspect]
     Indication: HISTIOCYTOSIS HAEMATOPHAGIC
  8. VINCRISTINE [Concomitant]
     Indication: HISTIOCYTOSIS HAEMATOPHAGIC
     Dosage: UNK
     Route: 065
  9. CAMPATH [Suspect]
     Indication: LYMPHOMA
     Dosage: UNK
     Route: 065

REACTIONS (3)
  - SEPSIS [None]
  - NECROTISING FASCIITIS [None]
  - BONE MARROW FAILURE [None]
